FAERS Safety Report 5956564-X (Version None)
Quarter: 2008Q4

REPORT INFORMATION
  Report Type: 
  Country: None (occurrence: None)
  Receive Date: 20081114
  Receipt Date: 20081114
  Transmission Date: 20090506
  Serious: Yes (Other)
  Sender: FDA-Public Use
  Company Number: None

PATIENT
  Age: 49 Year
  Sex: Male
  Weight: 88.4514 kg

DRUGS (2)
  1. METOPROLOL TARTRATE [Suspect]
     Indication: HYPERTENSION
     Dosage: 75MG 1/DAY PO
     Route: 048
     Dates: start: 20080915, end: 20081113
  2. TOPROL-XL [Suspect]

REACTIONS (2)
  - ADVERSE EVENT [None]
  - PRODUCT QUALITY ISSUE [None]
